FAERS Safety Report 8987306 (Version 2)
Quarter: 2014Q4

REPORT INFORMATION
  Report Type: Report from Study
  Country: CA (occurrence: CA)
  Receive Date: 20121226
  Receipt Date: 20141022
  Transmission Date: 20150529
  Serious: Yes (Hospitalization)
  Sender: FDA-Public Use
  Company Number: CA-ROCHE-1168205

PATIENT
  Sex: Male
  Weight: 84 kg

DRUGS (7)
  1. TOCILIZUMAB [Suspect]
     Active Substance: TOCILIZUMAB
     Indication: RHEUMATOID ARTHRITIS
     Route: 042
     Dates: start: 20111026
  2. PREDNISONE. [Concomitant]
     Active Substance: PREDNISONE
  3. KINERET [Concomitant]
     Active Substance: ANAKINRA
  4. TOCILIZUMAB [Suspect]
     Active Substance: TOCILIZUMAB
     Route: 042
  5. INDOCID [Concomitant]
     Active Substance: INDOMETHACIN
  6. ALENDRONATE [Concomitant]
     Active Substance: ALENDRONATE SODIUM
  7. OMEPRAZOLE. [Concomitant]
     Active Substance: OMEPRAZOLE

REACTIONS (2)
  - Weight increased [Not Recovered/Not Resolved]
  - Joint destruction [Recovered/Resolved]
